FAERS Safety Report 21686509 (Version 5)
Quarter: 2023Q4

REPORT INFORMATION
  Report Type: Spontaneous
  Country: US (occurrence: US)
  Receive Date: 20221206
  Receipt Date: 20231117
  Transmission Date: 20240110
  Serious: Yes (Disabling, Other)
  Sender: FDA-Public Use
  Company Number: US-ORGANON-O2212USA000223

PATIENT
  Sex: Female

DRUGS (7)
  1. SINGULAIR [Suspect]
     Active Substance: MONTELUKAST SODIUM
     Indication: Asthma
     Dosage: UNK
     Route: 048
     Dates: start: 201003
  2. SINGULAIR [Suspect]
     Active Substance: MONTELUKAST SODIUM
     Indication: Hypersensitivity
  3. PROAIR HFA [Suspect]
     Active Substance: ALBUTEROL SULFATE
     Indication: Asthma
     Dosage: UNK
     Dates: start: 2009
  4. PROAIR HFA [Suspect]
     Active Substance: ALBUTEROL SULFATE
     Indication: Hypersensitivity
  5. SYMBICORT [Suspect]
     Active Substance: BUDESONIDE\FORMOTEROL FUMARATE DIHYDRATE
     Indication: Asthma
     Dosage: UNK
     Dates: start: 2010
  6. SYMBICORT [Suspect]
     Active Substance: BUDESONIDE\FORMOTEROL FUMARATE DIHYDRATE
     Indication: Hypersensitivity
  7. AVIANE [Suspect]
     Active Substance: ETHINYL ESTRADIOL\LEVONORGESTREL
     Indication: Contraception
     Dosage: UNK
     Dates: start: 2018

REACTIONS (16)
  - Neuropsychological symptoms [Not Recovered/Not Resolved]
  - Intentional self-injury [Unknown]
  - Generalised anxiety disorder [Recovering/Resolving]
  - Tic [Not Recovered/Not Resolved]
  - Suicidal ideation [Recovered/Resolved]
  - Major depression [Not Recovered/Not Resolved]
  - Hallucination [Recovered/Resolved]
  - Polycystic ovarian syndrome [Unknown]
  - Sleep terror [Unknown]
  - Obsessive-compulsive disorder [Not Recovered/Not Resolved]
  - Self-injurious ideation [Unknown]
  - Behaviour disorder [Unknown]
  - Panic attack [Unknown]
  - Nightmare [Unknown]
  - Borderline personality disorder [Unknown]
  - Obesity [Unknown]

NARRATIVE: CASE EVENT DATE: 20100101
